FAERS Safety Report 20908060 (Version 1)
Quarter: 2022Q2

REPORT INFORMATION
  Report Type: Spontaneous
  Country: None (occurrence: BE)
  Receive Date: 20220602
  Receipt Date: 20220602
  Transmission Date: 20220720
  Serious: Yes (Other)
  Sender: FDA-Public Use
  Company Number: BE-B.Braun Medical Inc.-2129436

PATIENT
  Age: 40 Year
  Sex: Female

DRUGS (2)
  1. ACETAMINOPHEN [Suspect]
     Active Substance: ACETAMINOPHEN
  2. COMIRNATY [Suspect]
     Active Substance: TOZINAMERAN

REACTIONS (7)
  - Narcolepsy [Recovered/Resolved with Sequelae]
  - Headache [Recovered/Resolved with Sequelae]
  - Migraine [Recovered/Resolved with Sequelae]
  - Vomiting [Recovered/Resolved with Sequelae]
  - Fatigue [Recovered/Resolved with Sequelae]
  - Nausea [Recovered/Resolved with Sequelae]
  - Pyrexia [Recovered/Resolved with Sequelae]
